FAERS Safety Report 6074766-1 (Version None)
Quarter: 2009Q1

REPORT INFORMATION
  Report Type: 
  Country: None (occurrence: None)
  Receive Date: 20090212
  Receipt Date: 20090204
  Transmission Date: 20090719
  Serious: Yes (Hospitalization)
  Sender: FDA-Public Use
  Company Number: SE-JNJFOC-20090200719

PATIENT
  Sex: Female

DRUGS (8)
  1. REMINYL [Suspect]
     Indication: PSYCHOTIC DISORDER
     Dosage: FOR 4-5 YEARS
     Route: 048
  2. ATACAND [Concomitant]
     Route: 048
  3. PAMOL [Concomitant]
     Route: 048
  4. SIMVASTATIN [Concomitant]
     Route: 048
  5. ZOPIKLON [Concomitant]
  6. NITROMEX [Concomitant]
     Route: 048
  7. FURIX [Concomitant]
     Route: 048
  8. TROMBYL [Concomitant]
     Route: 048

REACTIONS (2)
  - BALANCE DISORDER [None]
  - GAIT DISTURBANCE [None]
